FAERS Safety Report 5726165-7 (Version None)
Quarter: 2008Q2

REPORT INFORMATION
  Report Type: 
  Country: None (occurrence: None)
  Receive Date: 20080502
  Receipt Date: 20080425
  Transmission Date: 20081010
  Serious: Yes (Life-Threatening, Other)
  Sender: FDA-Public Use
  Company Number: US-BAYER-200815982NA

PATIENT
  Sex: Male

DRUGS (1)
  1. AVELOX [Suspect]
     Indication: SINUSITIS
     Route: 048

REACTIONS (9)
  - ANAPHYLACTIC REACTION [None]
  - CHEST PAIN [None]
  - DIZZINESS [None]
  - GASTROINTESTINAL PAIN [None]
  - HYPOTENSION [None]
  - PHARYNGEAL OEDEMA [None]
  - PRURITUS GENERALISED [None]
  - SYNCOPE [None]
  - URTICARIA [None]
